FAERS Safety Report 24448591 (Version 1)
Quarter: 2024Q4

REPORT INFORMATION
  Report Type: Spontaneous
  Country: AU (occurrence: AU)
  Receive Date: 20241017
  Receipt Date: 20241017
  Transmission Date: 20250115
  Serious: Yes (Other)
  Sender: NOVO NORDISK
  Company Number: None

PATIENT
  Age: 39 Year
  Sex: Male

DRUGS (1)
  1. OZEMPIC [Suspect]
     Active Substance: SEMAGLUTIDE
     Indication: Type 2 diabetes mellitus
     Dosage: UNK
     Route: 058
     Dates: start: 2020, end: 20230915

REACTIONS (4)
  - Behaviour disorder [Recovering/Resolving]
  - Dissociative amnesia [Recovering/Resolving]
  - Eating disorder [Recovering/Resolving]
  - Impulse-control disorder [Recovering/Resolving]

NARRATIVE: CASE EVENT DATE: 20200101
